FAERS Safety Report 11391938 (Version 1)
Quarter: 2015Q3

REPORT INFORMATION
  Report Type: Spontaneous
  Country: US (occurrence: None)
  Receive Date: 20150817
  Receipt Date: 20150817
  Transmission Date: 20151125
  Serious: Yes (Life-Threatening)
  Sender: FDA-Public Use
  Company Number: None

PATIENT
  Age: 37 Year
  Sex: Female

DRUGS (1)
  1. MYCOPHENOLATE [Suspect]
     Active Substance: MYCOPHENOLIC ACID
     Dosage: STRENGTH: 250  DOSE FORM: ORAL   FREQUENCY: 4CBID
     Route: 048

REACTIONS (2)
  - Reaction to colouring [None]
  - Anaphylactic reaction [None]

NARRATIVE: CASE EVENT DATE: 20150814
